FAERS Safety Report 7388423-2 (Version None)
Quarter: 2011Q2

REPORT INFORMATION
  Report Type: 
  Country: None (occurrence: None)
  Receive Date: 20110401
  Receipt Date: 20110317
  Transmission Date: 20111010
  Serious: No
  Sender: FDA-Public Use
  Company Number: US-JNJFOC-20110308676

PATIENT
  Sex: Female
  Weight: 68.04 kg

DRUGS (6)
  1. DURAGESIC-50 [Suspect]
     Route: 062
  2. WELLBUTRIN [Concomitant]
     Indication: PAIN
     Route: 048
  3. VITAMIN B-12 [Concomitant]
     Indication: MEDICAL DIET
     Route: 065
  4. DURAGESIC-50 [Suspect]
     Indication: PAIN
     Route: 062
  5. THYROID TAB [Concomitant]
     Indication: THYROID DISORDER
     Route: 048
  6. PROZAC [Concomitant]
     Indication: PAIN
     Route: 003

REACTIONS (8)
  - NAUSEA [None]
  - MALAISE [None]
  - FEELING HOT [None]
  - PAIN [None]
  - INCORRECT DRUG ADMINISTRATION DURATION [None]
  - FEELING COLD [None]
  - FEELING ABNORMAL [None]
  - INAPPROPRIATE SCHEDULE OF DRUG ADMINISTRATION [None]
